FAERS Safety Report 10696370 (Version 2)
Quarter: 2015Q1

REPORT INFORMATION
  Report Type: Report from Study
  Country: NL (occurrence: NL)
  Receive Date: 20150107
  Receipt Date: 20150128
  Transmission Date: 20150721
  Serious: Yes (Death, Hospitalization, Other)
  Sender: FDA-Public Use
  Company Number: NL-ABBVIE-15P-114-1329989-00

PATIENT
  Age: 63 Year
  Sex: Male

DRUGS (7)
  1. LUCRIN DEPOT (LEUPRORELINE) [Suspect]
     Active Substance: LEUPROLIDE ACETATE
     Indication: PROSTATE CANCER METASTATIC
     Route: 058
     Dates: start: 20090319
  2. DEXAMETHASON [Suspect]
     Active Substance: DEXAMETHASONE
     Indication: SPINAL CORD COMPRESSION
     Dosage: 2 UNITS 4 MG
     Route: 048
     Dates: start: 20141112, end: 20141208
  3. MELOXICAM. [Suspect]
     Active Substance: MELOXICAM
     Indication: PAIN
     Dosage: 1 UNIT OF 15 MG
     Route: 048
     Dates: start: 20141121, end: 20141208
  4. DEXAMETHASON [Suspect]
     Active Substance: DEXAMETHASONE
     Dosage: 1 UNIT 0.5 MG
     Route: 048
     Dates: start: 20141208
  5. DENOSUMAB [Suspect]
     Active Substance: DENOSUMAB
     Indication: METASTASES TO BONE
     Route: 058
     Dates: end: 20141225
  6. OMEPRAZOL [Concomitant]
     Active Substance: OMEPRAZOLE
     Indication: GASTRIC DISORDER
     Route: 048
     Dates: start: 20141113, end: 20141123
  7. OMEPRAZOL [Concomitant]
     Active Substance: OMEPRAZOLE
     Indication: PROPHYLAXIS

REACTIONS (8)
  - Paraplegia [Recovering/Resolving]
  - Acute abdomen [Unknown]
  - Bone formation increased [Unknown]
  - Spinal cord compression [Unknown]
  - Paraplegia [Recovered/Resolved]
  - Large intestine perforation [Fatal]
  - Septic shock [Fatal]
  - Peritonitis [Unknown]

NARRATIVE: CASE EVENT DATE: 20140120
